APPROVED DRUG PRODUCT: LACTULOSE
Active Ingredient: LACTULOSE
Strength: 10GM/15ML
Dosage Form/Route: SOLUTION;ORAL
Application: A075993 | Product #001 | TE Code: AA
Applicant: LANNETT CO INC
Approved: Jul 26, 2001 | RLD: No | RS: No | Type: RX